FAERS Safety Report 18806878 (Version 3)
Quarter: 2021Q2

REPORT INFORMATION
  Report Type: Report from Study
  Country: None (occurrence: CO)
  Receive Date: 20210129
  Receipt Date: 20210416
  Transmission Date: 20210717
  Serious: Yes (Other)
  Sender: FDA-Public Use
  Company Number: CO-ABBVIE-19K-036-2986234-00

PATIENT
  Age: 60 Year
  Sex: Female

DRUGS (4)
  1. HUMIRA [Suspect]
     Active Substance: ADALIMUMAB
     Route: 058
     Dates: end: 202103
  2. HUMIRA [Suspect]
     Active Substance: ADALIMUMAB
     Route: 058
     Dates: end: 20200925
  3. IMIPRAMINE [Suspect]
     Active Substance: IMIPRAMINE
     Indication: ADVERSE EVENT
     Route: 065
     Dates: start: 20210114
  4. HUMIRA [Suspect]
     Active Substance: ADALIMUMAB
     Indication: RHEUMATOID ARTHRITIS
     Route: 058
     Dates: start: 20180817, end: 20190906

REACTIONS (29)
  - Peripheral sensory neuropathy [Not Recovered/Not Resolved]
  - Dizziness [Not Recovered/Not Resolved]
  - Musculoskeletal discomfort [Not Recovered/Not Resolved]
  - Vomiting [Recovered/Resolved]
  - Hypertension [Recovered/Resolved]
  - Immunodeficiency [Recovering/Resolving]
  - Insomnia [Not Recovered/Not Resolved]
  - Fall [Not Recovered/Not Resolved]
  - Gastrooesophageal reflux disease [Not Recovered/Not Resolved]
  - Pain in extremity [Not Recovered/Not Resolved]
  - Urinary tract infection [Recovering/Resolving]
  - Headache [Recovered/Resolved]
  - Hypotension [Recovered/Resolved]
  - Abdominal discomfort [Recovering/Resolving]
  - Nervous system disorder [Not Recovered/Not Resolved]
  - Immune system disorder [Recovering/Resolving]
  - Feeling hot [Recovering/Resolving]
  - Discomfort [Not Recovered/Not Resolved]
  - Arthropathy [Not Recovered/Not Resolved]
  - Abdominal pain upper [Not Recovered/Not Resolved]
  - Malaise [Recovering/Resolving]
  - Osteoarthritis [Not Recovered/Not Resolved]
  - Paraesthesia [Not Recovered/Not Resolved]
  - Gastrointestinal pain [Recovering/Resolving]
  - Gait disturbance [Not Recovered/Not Resolved]
  - Bacterial infection [Recovering/Resolving]
  - Feeling of body temperature change [Not Recovered/Not Resolved]
  - Hypoaesthesia [Unknown]
  - Dizziness [Recovered/Resolved]

NARRATIVE: CASE EVENT DATE: 20191107
